FAERS Safety Report 25082185 (Version 1)
Quarter: 2025Q1

REPORT INFORMATION
  Report Type: Spontaneous
  Country: US (occurrence: US)
  Receive Date: 20250317
  Receipt Date: 20250317
  Transmission Date: 20250409
  Serious: No
  Sender: AMGEN
  Company Number: US-AMGEN-USASP2025048745

PATIENT
  Age: 68 Year
  Sex: Female

DRUGS (10)
  1. MVASI [Suspect]
     Active Substance: BEVACIZUMAB-AWWB
     Indication: Cervix carcinoma
     Route: 065
     Dates: start: 20220228
  2. AVASTIN [Concomitant]
     Active Substance: BEVACIZUMAB
  3. PEMBROLIZUMAB [Concomitant]
     Active Substance: PEMBROLIZUMAB
  4. PACLITAXEL [Concomitant]
     Active Substance: PACLITAXEL
  5. CARBOPLATIN [Concomitant]
     Active Substance: CARBOPLATIN
  6. PALONOSETRON [Concomitant]
     Active Substance: PALONOSETRON
  7. DEXAMETHASONE [Concomitant]
     Active Substance: DEXAMETHASONE
  8. FOSAPREPITANT [Concomitant]
     Active Substance: FOSAPREPITANT
  9. ZYRTEC [Concomitant]
     Active Substance: CETIRIZINE HYDROCHLORIDE
  10. FAMOTIDINE [Concomitant]
     Active Substance: FAMOTIDINE

REACTIONS (10)
  - Memory impairment [Not Recovered/Not Resolved]
  - Thirst [Not Recovered/Not Resolved]
  - Pruritus [Recovered/Resolved]
  - Erythema [Recovered/Resolved]
  - Somnolence [Not Recovered/Not Resolved]
  - Fatigue [Not Recovered/Not Resolved]
  - Asthenia [Not Recovered/Not Resolved]
  - Decreased appetite [Recovered/Resolved]
  - Blood glucose increased [Recovered/Resolved]
  - Alopecia [Recovered/Resolved]

NARRATIVE: CASE EVENT DATE: 20220228
